FAERS Safety Report 25156207 (Version 1)
Quarter: 2025Q2

REPORT INFORMATION
  Report Type: Spontaneous
  Country: US (occurrence: US)
  Receive Date: 20250403
  Receipt Date: 20250403
  Transmission Date: 20250716
  Serious: Yes (Other)
  Sender: AMGEN
  Company Number: US-AMGEN-USASP2025060325

PATIENT
  Age: 70 Year
  Sex: Male

DRUGS (12)
  1. PREDNISONE [Suspect]
     Active Substance: PREDNISONE
     Indication: Pneumonitis
     Route: 065
  2. PREDNISONE [Suspect]
     Active Substance: PREDNISONE
     Route: 065
  3. PREDNISONE [Suspect]
     Active Substance: PREDNISONE
     Route: 065
  4. PREDNISONE [Suspect]
     Active Substance: PREDNISONE
     Route: 065
     Dates: start: 202212
  5. PREDNISONE [Suspect]
     Active Substance: PREDNISONE
     Dosage: 10 MILLIGRAM, QD
     Route: 065
  6. PREDNISONE [Suspect]
     Active Substance: PREDNISONE
     Dosage: 7.5 MILLIGRAM, QD
     Route: 065
  7. PREDNISONE [Suspect]
     Active Substance: PREDNISONE
     Dosage: 5 MILLIGRAM, QD
     Route: 065
  8. PREDNISONE [Suspect]
     Active Substance: PREDNISONE
     Dosage: 0.5 MILLIGRAM/KILOGRAM, QD
     Route: 065
  9. OSIMERTINIB [Concomitant]
     Active Substance: OSIMERTINIB
     Dosage: 80 MILLIGRAM, QD
  10. TELISOTUZUMAB [Concomitant]
     Active Substance: TELISOTUZUMAB
     Dosage: 1.6 MILLIGRAM/KILOGRAM, Q2WK
     Route: 040
  11. TELISOTUZUMAB [Concomitant]
     Active Substance: TELISOTUZUMAB
     Dosage: 1.3 MILLIGRAM/KILOGRAM, Q2WK
     Route: 040
  12. TELISOTUZUMAB [Concomitant]
     Active Substance: TELISOTUZUMAB
     Dosage: 1 MILLIGRAM/KILOGRAM, Q2WK
     Route: 040

REACTIONS (5)
  - Pneumonitis [Recovered/Resolved]
  - Metastases to central nervous system [Unknown]
  - Lung adenocarcinoma [Unknown]
  - Drug effective for unapproved indication [Unknown]
  - Off label use [Unknown]
